FAERS Safety Report 5263380-3 (Version None)
Quarter: 2007Q1

REPORT INFORMATION
  Report Type: 
  Country: None (occurrence: None)
  Receive Date: 20070308
  Receipt Date: 20070226
  Transmission Date: 20070707
  Serious: No
  Sender: FDA-Public Use
  Company Number: 2007-154547-NL

PATIENT
  Age: 17 Year
  Sex: Female

DRUGS (2)
  1. ETONOGESTREL [Suspect]
     Dosage: DF NI
     Dates: start: 20060624, end: 20070214
  2. OMEPRAZOLE [Concomitant]

REACTIONS (3)
  - ABORTION SPONTANEOUS [None]
  - EPILEPSY [None]
  - PREGNANCY WITH IMPLANT CONTRACEPTIVE [None]
